FAERS Safety Report 8880649 (Version 1)
Quarter: 2012Q4

REPORT INFORMATION
  Report Type: 
  Country: IT (occurrence: IT)
  Receive Date: 20121101
  Receipt Date: 20121101
  Transmission Date: 20130627
  Serious: Yes (Other)
  Sender: FDA-Public Use
  Company Number: IT-SANOFI-AVENTIS-2012SA078587

PATIENT
  Age: 69 Year
  Sex: Female

DRUGS (9)
  1. LASIX [Suspect]
     Indication: DRUG USE FOR UNKNOWN INDICATION
     Route: 065
     Dates: start: 20120101, end: 20120831
  2. LASITONE [Suspect]
     Indication: DRUG USE FOR UNKNOWN INDICATION
     Route: 065
     Dates: start: 20120101, end: 20120831
  3. SELOKEN [Suspect]
     Indication: DRUG USE FOR UNKNOWN INDICATION
     Dosage: strength: 100 mg
     Route: 065
     Dates: start: 20120101, end: 20120831
  4. ADALAT [Suspect]
     Indication: DRUG USE FOR UNKNOWN INDICATION
     Dosage: strength: 20 mg
     Route: 065
     Dates: start: 20120101, end: 20120831
  5. DOXORUBICIN [Concomitant]
     Indication: BREAST CARCINOMA
     Dates: start: 20120820, end: 20120820
  6. DELTACORTENE [Concomitant]
  7. PANTOPRAZOLE SODIUM [Concomitant]
  8. DIFLUCAN [Concomitant]
  9. FENTANYL [Concomitant]
     Dosage: form: transdermal patches

REACTIONS (5)
  - Syncope [Recovering/Resolving]
  - Decreased appetite [Recovering/Resolving]
  - Malaise [Recovering/Resolving]
  - Asthenia [Recovering/Resolving]
  - Hypotension [Recovering/Resolving]
